FAERS Safety Report 7984421-6 (Version None)
Quarter: 2011Q4

REPORT INFORMATION
  Report Type: 
  Country: None (occurrence: None)
  Receive Date: 20111216
  Receipt Date: 20111205
  Transmission Date: 20120403
  Serious: Yes (Other)
  Sender: FDA-Public Use
  Company Number: US-ELI_LILLY_AND_COMPANY-US201104000096

PATIENT
  Sex: Female

DRUGS (12)
  1. PHENOBARBITAL TAB [Concomitant]
     Dosage: UNK, BID
  2. LASIX [Concomitant]
     Dosage: UNK, QD
  3. DILANTIN [Concomitant]
     Dosage: UNK, BID
  4. VYTORIN [Concomitant]
     Dosage: UNK, QD
  5. EXFORGE [Concomitant]
     Dosage: UNK, QD
  6. FORTEO [Suspect]
  7. CALTRATE + VITAMIN D [Concomitant]
     Dosage: UNK, BID
  8. COMBIVENT [Concomitant]
     Dosage: UNK, EVERY 8 HRS
  9. COREG CR [Concomitant]
     Dosage: UNK, QD
  10. FORTEO [Suspect]
     Indication: OSTEOPOROSIS
     Dosage: UNK
     Dates: start: 20100825
  11. MICRO-K [Concomitant]
     Dosage: UNK, QD
  12. DIAZEPAM [Concomitant]
     Indication: ANXIETY
     Dosage: 5 MG, OTHER

REACTIONS (6)
  - CARDIAC PACEMAKER REPLACEMENT [None]
  - FULL BLOOD COUNT DECREASED [None]
  - ANAEMIA [None]
  - GASTRITIS [None]
  - HYPOKINESIA [None]
  - HIATUS HERNIA [None]
